FAERS Safety Report 16980724 (Version 1)
Quarter: 2019Q4

REPORT INFORMATION
  Report Type: Spontaneous
  Country: US (occurrence: US)
  Receive Date: 20191031
  Receipt Date: 20191031
  Transmission Date: 20200122
  Serious: Yes (Other)
  Sender: FDA-Public Use
  Company Number: US-GLAXOSMITHKLINE-US2019GSK194193

PATIENT
  Age: 10 Year
  Sex: Male

DRUGS (8)
  1. ALBUTEROL. [Suspect]
     Active Substance: ALBUTEROL
     Indication: STATUS ASTHMATICUS
     Dosage: UNK
     Route: 055
  2. METHYLPREDNISOLONE. [Suspect]
     Active Substance: METHYLPREDNISOLONE
     Indication: STATUS ASTHMATICUS
     Dosage: UNK
     Route: 042
  3. THEOPHYLLINE [Suspect]
     Active Substance: THEOPHYLLINE ANHYDROUS
     Indication: STATUS ASTHMATICUS
     Dosage: 1.6 MG/KG/HR
     Route: 042
  4. KETAMINE [Suspect]
     Active Substance: KETAMINE
     Indication: STATUS ASTHMATICUS
     Dosage: UNK
     Route: 042
  5. ISOFLURANE. [Suspect]
     Active Substance: ISOFLURANE
     Indication: BRONCHOSPASM
     Dosage: UNK
  6. MAGNESIUM [Suspect]
     Active Substance: MAGNESIUM
     Indication: STATUS ASTHMATICUS
     Dosage: UNK
     Route: 042
  7. TERBUTALINE [Suspect]
     Active Substance: TERBUTALINE
     Indication: STATUS ASTHMATICUS
     Dosage: 4 MCG/KG/MIN
     Route: 042
  8. IPRATROPIUM BROMIDE. [Suspect]
     Active Substance: IPRATROPIUM BROMIDE
     Indication: STATUS ASTHMATICUS
     Dosage: UNK
     Route: 055

REACTIONS (5)
  - Ventricular extrasystoles [Recovering/Resolving]
  - Ventricular pre-excitation [Recovering/Resolving]
  - Wolff-Parkinson-White syndrome [Recovering/Resolving]
  - Ventricular tachycardia [Recovering/Resolving]
  - Drug ineffective [Unknown]
